FAERS Safety Report 5419004-5 (Version None)
Quarter: 2007Q3

REPORT INFORMATION
  Report Type: 
  Country: None (occurrence: None)
  Receive Date: 20070817
  Receipt Date: 20070809
  Transmission Date: 20080115
  Serious: Yes (Other)
  Sender: FDA-Public Use
  Company Number: US-PFIZER INC-2007066537

PATIENT
  Sex: Female

DRUGS (2)
  1. DETROL LA [Suspect]
  2. TOPROL-XL [Suspect]
     Indication: HYPERTENSION

REACTIONS (1)
  - HYPERTENSION [None]
